FAERS Safety Report 18890556 (Version 1)
Quarter: 2021Q1

REPORT INFORMATION
  Report Type: Report from Study
  Country: US (occurrence: US)
  Receive Date: 20210214
  Receipt Date: 20210214
  Transmission Date: 20210420
  Serious: Yes (Other)
  Sender: FDA-Public Use
  Company Number: US-SUN PHARMACEUTICAL INDUSTRIES LTD-2021R1-279973

PATIENT
  Age: 30 Year
  Sex: Female

DRUGS (3)
  1. FENTANYL. [Suspect]
     Active Substance: FENTANYL
     Indication: UTERINE DILATION AND CURETTAGE
     Route: 065
  2. MORPHINE [Suspect]
     Active Substance: MORPHINE
     Indication: UTERINE DILATION AND CURETTAGE
     Route: 065
  3. BREVITAL SODIUM [Suspect]
     Active Substance: METHOHEXITAL SODIUM
     Indication: UTERINE DILATION AND CURETTAGE
     Route: 065

REACTIONS (1)
  - Stridor [Unknown]
